FAERS Safety Report 9708097 (Version 1)
Quarter: 2013Q4

REPORT INFORMATION
  Report Type: Spontaneous
  Country: US (occurrence: None)
  Receive Date: 20131122
  Receipt Date: 20131122
  Transmission Date: 20140711
  Serious: Yes (Disabling)
  Sender: FDA-Public Use
  Company Number: None

PATIENT
  Age: 22 Year
  Sex: Male
  Weight: 106.6 kg

DRUGS (2)
  1. INVEGA SUSTENNA [Suspect]
     Indication: BIPOLAR DISORDER
     Dosage: 256 MG AS NEEDED INTO THE MUSCLE
     Route: 030
     Dates: start: 20120901, end: 20131123
  2. INVEGA SUSTENNA [Suspect]
     Indication: AUTISM
     Dosage: 256 MG AS NEEDED INTO THE MUSCLE
     Route: 030
     Dates: start: 20120901, end: 20131123

REACTIONS (1)
  - Parkinson^s disease [None]
